FAERS Safety Report 5895739-5 (Version None)
Quarter: 2008Q3

REPORT INFORMATION
  Report Type: 
  Country: None (occurrence: None)
  Receive Date: 20080924
  Receipt Date: 20080701
  Transmission Date: 20090109
  Serious: No
  Sender: FDA-Public Use
  Company Number: US-BAYER-200828088NA

PATIENT
  Sex: Female

DRUGS (1)
  1. MIRENA [Suspect]
     Indication: CONTRACEPTION
     Route: 015
     Dates: start: 20080329

REACTIONS (5)
  - ABDOMINAL PAIN [None]
  - AMENORRHOEA [None]
  - DYSPAREUNIA [None]
  - PAIN IN EXTREMITY [None]
  - PROCEDURAL PAIN [None]
